FAERS Safety Report 9757229 (Version 1)
Quarter: 2013Q4

REPORT INFORMATION
  Report Type: Report from Study
  Country: US (occurrence: US)
  Receive Date: 20131213
  Receipt Date: 20131213
  Transmission Date: 20140711
  Serious: Yes (Hospitalization, Other)
  Sender: FDA-Public Use
  Company Number: US-ABBVIE-13P-163-1176908-00

PATIENT
  Age: 56 Year
  Sex: Female
  Weight: 68.1 kg

DRUGS (3)
  1. HUMIRA [Suspect]
     Indication: RHEUMATOID ARTHRITIS
     Dosage: PFS
     Route: 058
     Dates: end: 2006
  2. HUMIRA [Suspect]
     Dosage: PENS
     Route: 058
     Dates: start: 2006, end: 200908
  3. HUMIRA [Suspect]
     Route: 058
     Dates: start: 200912

REACTIONS (7)
  - Joint dislocation [Recovered/Resolved]
  - Tooth disorder [Not Recovered/Not Resolved]
  - Road traffic accident [Recovered/Resolved]
  - Lower limb fracture [Recovered/Resolved]
  - Spinal fracture [Recovered/Resolved]
  - Laceration [Recovered/Resolved]
  - Nerve injury [Not Recovered/Not Resolved]
